FAERS Safety Report 7050272-2 (Version None)
Quarter: 2010Q4

REPORT INFORMATION
  Report Type: 
  Country: None (occurrence: None)
  Receive Date: 20101018
  Receipt Date: 20101008
  Transmission Date: 20110411
  Serious: Yes (Hospitalization)
  Sender: FDA-Public Use
  Company Number: A0885558A

PATIENT
  Sex: Male
  Weight: 95 kg

DRUGS (2)
  1. DIGIBIND [Suspect]
     Indication: PRODUCT USED FOR UNKNOWN INDICATION
     Route: 065
  2. DIGOXIN [Concomitant]
     Route: 065

REACTIONS (1)
  - ARRHYTHMIA [None]
